FAERS Safety Report 9817340 (Version 1)
Quarter: 2014Q1

REPORT INFORMATION
  Report Type: Report from Study
  Country: US (occurrence: US)
  Receive Date: 20140115
  Receipt Date: 20140115
  Transmission Date: 20141002
  Serious: Yes (Other)
  Sender: FDA-Public Use
  Company Number: US-ROCHE-1331698

PATIENT
  Age: 16 Year
  Sex: Male
  Weight: 30.6 kg

DRUGS (6)
  1. NUTROPIN AQ [Suspect]
     Indication: GROWTH HORMONE DEFICIENCY
     Route: 058
     Dates: start: 20091007
  2. LISINOPRIL [Concomitant]
  3. LASIX [Concomitant]
     Dosage: 6 AM AND 4 PM
     Route: 048
     Dates: start: 20091022
  4. AMOXIL [Concomitant]
     Route: 065
     Dates: start: 20090728
  5. ALDACTONE (UNITED STATES) [Concomitant]
     Route: 065
     Dates: start: 20091022
  6. ASPIRIN [Concomitant]
     Route: 048
     Dates: start: 20091022

REACTIONS (3)
  - Kyphosis [Recovered/Resolved]
  - Bone deformity [Unknown]
  - Weight gain poor [Unknown]
